FAERS Safety Report 5472010-7 (Version None)
Quarter: 2007Q3

REPORT INFORMATION
  Report Type: 
  Country: None (occurrence: None)
  Receive Date: 20070928
  Receipt Date: 20070918
  Transmission Date: 20080115
  Serious: No
  Sender: FDA-Public Use
  Company Number: US-BOEHRINGER INGELHEIM PHARMACEUTICALS, INC.-2007-BP-21249BP

PATIENT
  Sex: Male

DRUGS (2)
  1. SPIRIVA [Suspect]
     Indication: PNEUMONIA
     Route: 055
     Dates: start: 20070820
  2. ADVAIR DISKUS 100/50 [Concomitant]

REACTIONS (2)
  - COUGH [None]
  - HEART RATE INCREASED [None]
